FAERS Safety Report 23743723 (Version 1)
Quarter: 2024Q2

REPORT INFORMATION
  Report Type: Spontaneous
  Country: GB (occurrence: GB)
  Receive Date: 20240415
  Receipt Date: 20240415
  Transmission Date: 20240716
  Serious: Yes (Hospitalization, Other)
  Sender: FDA-Public Use
  Company Number: None

PATIENT
  Age: 37 Year
  Sex: Male

DRUGS (7)
  1. CHLORPROMAZINE [Suspect]
     Active Substance: CHLORPROMAZINE
     Indication: Product used for unknown indication
     Dosage: UNK
     Route: 065
  2. CLOZARIL [Suspect]
     Active Substance: CLOZAPINE
     Indication: Schizophrenia
     Dosage: 200 MILLIGRAM, QD (ONCE NIGHT)
     Route: 048
     Dates: start: 20140326, end: 202402
  3. LITHIUM [Concomitant]
     Active Substance: LITHIUM
     Indication: Mood swings
     Dosage: 600 MILLIGRAM, QD (ONCE NIGHT)
     Route: 048
     Dates: start: 20131004
  4. BUSPIRONE [Concomitant]
     Active Substance: BUSPIRONE HYDROCHLORIDE
     Indication: Depression
     Dosage: 10 MILLIGRAM, BID
     Route: 048
     Dates: start: 20130902
  5. LEVOTHYROXINE [Concomitant]
     Active Substance: LEVOTHYROXINE\LEVOTHYROXINE SODIUM
     Indication: Hypothyroidism
     Dosage: 150 MICROGRAM, QD (ONCE MORNING)
     Route: 048
     Dates: start: 20130806
  6. PREGABALIN [Concomitant]
     Active Substance: PREGABALIN
     Indication: Anxiety
     Dosage: 75 MILLIGRAM, BID
     Route: 048
     Dates: start: 20131106, end: 202402
  7. VALPROATE SODIUM [Concomitant]
     Active Substance: VALPROATE SODIUM
     Indication: Epilepsy
     Dosage: 800 MILLIGRAM, QD (ONCE DAILY)
     Route: 048
     Dates: start: 201309, end: 202402

REACTIONS (6)
  - Schizophrenia [Unknown]
  - Seizure [Unknown]
  - Therapy interrupted [Unknown]
  - Antipsychotic drug level decreased [Unknown]
  - Catatonia [Unknown]
  - Treatment noncompliance [Unknown]

NARRATIVE: CASE EVENT DATE: 20240201
